FAERS Safety Report 7052034-9 (Version None)
Quarter: 2010Q4

REPORT INFORMATION
  Report Type: 
  Country: None (occurrence: None)
  Receive Date: 20101018
  Receipt Date: 20101018
  Transmission Date: 20110411
  Serious: Yes (Other)
  Sender: FDA-Public Use
  Company Number: None

PATIENT
  Age: 36 Year
  Sex: Female
  Weight: 51.2565 kg

DRUGS (2)
  1. PRISTIQ [Suspect]
     Indication: DEPRESSION
     Dosage: 1 DAILY PO
     Route: 048
  2. PRISTIQ [Suspect]

REACTIONS (6)
  - ANXIETY [None]
  - DEPRESSION [None]
  - HALLUCINATION, AUDITORY [None]
  - NAUSEA [None]
  - OBSESSIVE THOUGHTS [None]
  - SELF-INJURIOUS IDEATION [None]
